FAERS Safety Report 7382535-5 (Version None)
Quarter: 2011Q1

REPORT INFORMATION
  Report Type: 
  Country: None (occurrence: None)
  Receive Date: 20110329
  Receipt Date: 20110317
  Transmission Date: 20110831
  Serious: Yes (Other)
  Sender: FDA-Public Use
  Company Number: CA-BRISTOL-MYERS SQUIBB COMPANY-15306889

PATIENT
  Age: 41 Year
  Sex: Female

DRUGS (11)
  1. VOLTAREN [Concomitant]
  2. CORTISONE [Concomitant]
  3. NEXIUM [Concomitant]
  4. METHOTREXATE [Concomitant]
  5. ORENCIA [Suspect]
     Indication: RHEUMATOID ARTHRITIS
     Dosage: 9 INFUSIONS.LAST INFUSION ON 30AUG10. LAST DOSE CANCELED ON 27SEP2010,04OCT10. MAY10-OCT10
     Route: 042
     Dates: start: 20100316, end: 20101004
  6. SYNTHROID [Concomitant]
  7. CALCIUM [Concomitant]
  8. NORVASC [Concomitant]
  9. ADALIMUMAB [Suspect]
     Dates: start: 20091201, end: 20100501
  10. PLAQUENIL [Concomitant]
  11. FOLIC ACID [Concomitant]

REACTIONS (2)
  - URINARY TRACT INFECTION [None]
  - DEMYELINATION [None]
